FAERS Safety Report 7787048-4 (Version None)
Quarter: 2011Q3

REPORT INFORMATION
  Report Type: 
  Country: None (occurrence: None)
  Receive Date: 20110929
  Receipt Date: 20110927
  Transmission Date: 20111222
  Serious: Yes (Other)
  Sender: FDA-Public Use
  Company Number: CHPA2011SE13266

PATIENT
  Sex: Female

DRUGS (2)
  1. NICOTINE [Suspect]
     Dosage: UNK, UNK
  2. NICOTINE [Suspect]
     Dosage: UNK, UNK

REACTIONS (2)
  - CARDIAC DISORDER [None]
  - DRUG DEPENDENCE [None]
